FAERS Safety Report 7685095-4 (Version None)
Quarter: 2011Q3

REPORT INFORMATION
  Report Type: 
  Country: None (occurrence: None)
  Receive Date: 20110811
  Receipt Date: 20110727
  Transmission Date: 20111222
  Serious: Yes (Life-Threatening)
  Sender: FDA-Public Use
  Company Number: TCI2011A03530

PATIENT
  Sex: Female

DRUGS (33)
  1. OLMESARTAN MEDOXOMIL [Concomitant]
  2. CALBLOCK (AZELNIDIPINE) [Concomitant]
  3. DEPAS (ETIZOLAM) [Concomitant]
  4. LIPITOR [Concomitant]
  5. UREPEARL (UREA) [Concomitant]
  6. ADETPHOS (ADENOSINE TRIPHOSPHATE, DISODIUM SALD) [Concomitant]
  7. AMARYL [Concomitant]
  8. ALLEGRA [Concomitant]
  9. MOBIC [Concomitant]
  10. PL (CAFFEINE, SALICYLAMIDE, PARACETAMOL, PROMETHAZINE METHYLENE DISALI [Concomitant]
  11. YAKUBAN (FLURBIPROFEN) [Concomitant]
  12. MYSER (DIFLUPREDNATE) [Concomitant]
  13. MUCODYNE (CARBOCISTEINE) [Concomitant]
  14. MERISLON (BETAHISTINE MESILATE) [Concomitant]
  15. ACTOS [Suspect]
     Indication: DIABETES MELLITUS
     Dosage: 15 MG  (15 MG, 1 IN 1 D), PER ORAL, 30  MG  (30 MG, 1 IN 1 D), PER ORAL
     Route: 048
     Dates: start: 20051210, end: 20070202
  16. ACTOS [Suspect]
     Indication: DIABETES MELLITUS
     Dosage: 15 MG  (15 MG, 1 IN 1 D), PER ORAL, 30  MG  (30 MG, 1 IN 1 D), PER ORAL
     Route: 048
     Dates: start: 20090307, end: 20100109
  17. ACTOS [Suspect]
     Indication: DIABETES MELLITUS
     Dosage: 15 MG  (15 MG, 1 IN 1 D), PER ORAL, 30  MG  (30 MG, 1 IN 1 D), PER ORAL
     Route: 048
     Dates: start: 20070203, end: 20070514
  18. BASEN OD (VOGLIBOSE) [Concomitant]
  19. ACTIT (MALTOSE, SODIUM ACETATE, POTASSIUM CHLORIDE, SODIUM CHLORIDE, P [Concomitant]
  20. NAUZELIN (DOMPERIDONE) [Concomitant]
  21. KINEDAK (EPALRESTAT) [Concomitant]
  22. SOLITA-T3 (SODIUM LACTATE, POTASSIUM CHLORIDE, SODIM CHLORIDE) [Concomitant]
  23. LAC B (LACTOBACILLUS BIFIDUS, LYOPHILIZED) [Concomitant]
  24. DASEN (SERRAPETASE) [Concomitant]
  25. PRIMPERAN TAB [Concomitant]
  26. FLAVERIC (BENPROPERINE PHOSPHATE) [Concomitant]
  27. CEFZON (CEFDINIR) [Concomitant]
  28. ADALAT [Concomitant]
  29. TICLOPIDINE HCL [Concomitant]
  30. STICK ZENOL (DIPHENHYDRAMINE, CAMPHOR, THYMOL, METHYL SALICYLATE, MENT [Concomitant]
  31. LOCOID [Concomitant]
  32. MUCOSTA (REBAMIPIDE) [Concomitant]
  33. ISODINE [Concomitant]

REACTIONS (3)
  - WEIGHT INCREASED [None]
  - BLADDER TRANSITIONAL CELL CARCINOMA [None]
  - OEDEMA PERIPHERAL [None]
